FAERS Safety Report 9190001 (Version 1)
Quarter: 2013Q1

REPORT INFORMATION
  Report Type: Spontaneous
  Country: GR (occurrence: None)
  Receive Date: 20130322
  Receipt Date: 20130322
  Transmission Date: 20140127
  Serious: Yes (Other)
  Sender: FDA-Public Use
  Company Number: GR-MACLEODS PHARMA-000074

PATIENT
  Age: 63 Year
  Sex: Female

DRUGS (1)
  1. ESCITALOPRAM (ESCITALOPRAM) [Suspect]
     Indication: OBSESSIVE-COMPULSIVE DISORDER

REACTIONS (3)
  - Bruxism [None]
  - Toothache [None]
  - Headache [None]
